FAERS Safety Report 6902593-9 (Version None)
Quarter: 2010Q3

REPORT INFORMATION
  Report Type: 
  Country: None (occurrence: None)
  Receive Date: 20100803
  Receipt Date: 20080529
  Transmission Date: 20110219
  Serious: No
  Sender: FDA-Public Use
  Company Number: US-PFIZER INC-2008027982

PATIENT
  Sex: Male
  Weight: 117.9 kg

DRUGS (13)
  1. LYRICA [Suspect]
     Indication: NERVE INJURY
     Dates: start: 20070501
  2. LYRICA [Suspect]
     Indication: NEUROPATHY PERIPHERAL
  3. METFORMIN HCL [Concomitant]
  4. PROPRANOLOL [Concomitant]
  5. CRESTOR [Concomitant]
  6. CISPLATIN [Concomitant]
  7. QUINAPRIL [Concomitant]
  8. NORTRIPTYLINE [Concomitant]
  9. BUPROPION [Concomitant]
  10. ZETIA [Concomitant]
  11. ALLOPURINOL [Concomitant]
  12. WARFARIN SODIUM [Concomitant]
  13. ACTOS [Concomitant]

REACTIONS (3)
  - ARTHRALGIA [None]
  - HERPES ZOSTER [None]
  - VISION BLURRED [None]
